FAERS Safety Report 7441255-9 (Version None)
Quarter: 2011Q2

REPORT INFORMATION
  Report Type: 
  Country: None (occurrence: None)
  Receive Date: 20110428
  Receipt Date: 20110419
  Transmission Date: 20111010
  Serious: No
  Sender: FDA-Public Use
  Company Number: US-BIOGENIDEC-2011BI014971

PATIENT
  Age: 60 Year
  Sex: Female

DRUGS (1)
  1. TYSABRI [Suspect]
     Indication: MULTIPLE SCLEROSIS
     Route: 042
     Dates: start: 20070223

REACTIONS (7)
  - ARTHRALGIA [None]
  - JOINT INJURY [None]
  - LIGAMENT DISORDER [None]
  - MUSCLE SPASMS [None]
  - FATIGUE [None]
  - ARTHRITIS [None]
  - TENDON DISORDER [None]
